FAERS Safety Report 16271271 (Version 1)
Quarter: 2019Q2

REPORT INFORMATION
  Report Type: Spontaneous
  Country: US (occurrence: US)
  Receive Date: 20190503
  Receipt Date: 20190503
  Transmission Date: 20190711
  Serious: Yes (Hospitalization, Other)
  Sender: FDA-Public Use
  Company Number: US-BAYER-2019-085800

PATIENT
  Age: 64 Year
  Sex: Male

DRUGS (1)
  1. BETASERON [Suspect]
     Active Substance: INTERFERON BETA-1B
     Indication: MULTIPLE SCLEROSIS
     Dosage: 1 ML
     Dates: start: 2001

REACTIONS (6)
  - Gait disturbance [None]
  - Depression [None]
  - Stress [None]
  - Cerebrovascular accident [None]
  - Balance disorder [None]
  - Multiple sclerosis [None]

NARRATIVE: CASE EVENT DATE: 2003
